FAERS Safety Report 19383081 (Version 1)
Quarter: 2021Q2

REPORT INFORMATION
  Report Type: Spontaneous
  Country: FR (occurrence: FR)
  Receive Date: 20210607
  Receipt Date: 20210607
  Transmission Date: 20210717
  Serious: Yes (Hospitalization)
  Sender: FDA-Public Use
  Company Number: FR-MYLANLABS-2021M1032478

PATIENT
  Age: 29 Year
  Sex: Female
  Weight: 85 kg

DRUGS (4)
  1. KETUM [Suspect]
     Active Substance: KETOPROFEN
     Indication: PAIN
     Dosage: UNK UNK, PRN, IF NECESSARY
     Route: 048
  2. OMEPRAZOLE. [Suspect]
     Active Substance: OMEPRAZOLE
     Indication: GASTROOESOPHAGEAL REFLUX DISEASE
     Dosage: UNK, PRN, IF NECESSARY
     Route: 048
  3. BUDESONIDE W/FORMOTEROL [Suspect]
     Active Substance: BUDESONIDE\FORMOTEROL
     Indication: ASTHMA
     Dosage: UNK, PRN, 400 / 12UG / DOSE IF NEEDED
     Route: 055
     Dates: start: 2010
  4. DIENOGEST [Suspect]
     Active Substance: DIENOGEST
     Indication: ENDOMETRIOSIS
     Dosage: 2 MILLIGRAM, QD
     Route: 048
     Dates: start: 20200922

REACTIONS (2)
  - Mixed anxiety and depressive disorder [Recovering/Resolving]
  - Depression [Recovering/Resolving]

NARRATIVE: CASE EVENT DATE: 20200930
